FAERS Safety Report 8101557-X (Version None)
Quarter: 2012Q1

REPORT INFORMATION
  Report Type: 
  Country: None (occurrence: None)
  Receive Date: 20120129
  Receipt Date: 20111031
  Transmission Date: 20120608
  Serious: No
  Sender: FDA-Public Use
  Company Number: US-ABBOTT-11P-163-0855778-00

PATIENT
  Age: 61 Year
  Sex: Male

DRUGS (5)
  1. MICARDIS [Concomitant]
     Indication: HYPERTENSION
     Dosage: 80 MG DAILY
  2. HUMIRA [Suspect]
     Indication: CROHN'S DISEASE
     Dates: start: 20110806
  3. SINGUALAIR [Concomitant]
     Indication: SINUS DISORDER
     Dosage: 10 MG DAILY
  4. AMLODIPINE [Concomitant]
     Indication: HYPERTENSION
     Dosage: 10 MG DAILY
  5. COREG [Concomitant]
     Indication: HYPERTENSION
     Dosage: 10 MG DAILY

REACTIONS (4)
  - RASH [None]
  - SKIN BURNING SENSATION [None]
  - RASH VESICULAR [None]
  - PAIN OF SKIN [None]
